FAERS Safety Report 9299426 (Version 1)
Quarter: 2013Q2

REPORT INFORMATION
  Report Type: Spontaneous
  Country: US (occurrence: US)
  Receive Date: 20130520
  Receipt Date: 20130520
  Transmission Date: 20140414
  Serious: Yes (Hospitalization, Other)
  Sender: FDA-Public Use
  Company Number: US-AMGEN-USASP2013035087

PATIENT
  Age: 59 Year
  Sex: Male

DRUGS (2)
  1. ENBREL [Suspect]
     Indication: PRODUCT USED FOR UNKNOWN INDICATION
     Dosage: 50 MG, QWK
     Dates: start: 199811
  2. METHOTREXATE [Concomitant]
     Dosage: UNK

REACTIONS (5)
  - Arthralgia [Unknown]
  - Foot deformity [Unknown]
  - Device failure [Recovered/Resolved]
  - Blood pressure fluctuation [Not Recovered/Not Resolved]
  - Injection site pain [Recovered/Resolved]
